FAERS Safety Report 10790579 (Version 7)
Quarter: 2016Q4

REPORT INFORMATION
  Report Type: Report from Study
  Country: FR (occurrence: FR)
  Receive Date: 20150212
  Receipt Date: 20161216
  Transmission Date: 20170206
  Serious: Yes (Death, Hospitalization)
  Sender: FDA-Public Use
  Company Number: FR-009507513-1502FRA004420

PATIENT
  Age: 10 Year
  Sex: Female

DRUGS (6)
  1. DOLIPRANE [Concomitant]
     Active Substance: ACETAMINOPHEN
     Dosage: UNK
  2. TEMOZOLOMIDE. [Suspect]
     Active Substance: TEMOZOLOMIDE
     Dosage: 100 MG, CYCLICAL
     Route: 065
     Dates: start: 20140221, end: 20140403
  3. TEMOZOLOMIDE. [Suspect]
     Active Substance: TEMOZOLOMIDE
     Indication: GLIOMA
     Dosage: DAILY DOSE: 200 MG
     Route: 065
     Dates: start: 20140502, end: 20140506
  4. TEMOZOLOMIDE. [Suspect]
     Active Substance: TEMOZOLOMIDE
     Dosage: DAILY DOSE: 250 MG, CYCLE 8
     Dates: start: 20141212, end: 20141216
  5. BEVACIZUMAB [Suspect]
     Active Substance: BEVACIZUMAB
     Dosage: DAILY DOSE: 400 MG
     Route: 042
     Dates: start: 20141024
  6. BEVACIZUMAB [Suspect]
     Active Substance: BEVACIZUMAB
     Indication: GLIOMA
     Dosage: DAILY DOSE: 412.5 MG
     Route: 042
     Dates: start: 20140221, end: 20141021

REACTIONS (1)
  - B-cell type acute leukaemia [Fatal]

NARRATIVE: CASE EVENT DATE: 20150113
